FAERS Safety Report 9074097 (Version 2)
Quarter: 2013Q2

REPORT INFORMATION
  Report Type: Report from Study
  Country: US (occurrence: US)
  Receive Date: 20130129
  Receipt Date: 20130531
  Transmission Date: 20140414
  Serious: Yes (Other)
  Sender: FDA-Public Use
  Company Number: US-ABBOTT-12P-163-0915966-00

PATIENT
  Age: 65 Year
  Sex: Female

DRUGS (12)
  1. HUMIRA 40 MG/0.8 ML PEN [Suspect]
     Indication: CROHN^S DISEASE
     Dates: start: 201008
  2. FOSAMAX [Suspect]
     Indication: OSTEOPOROSIS
     Dates: end: 2012
  3. ATENOLOL [Concomitant]
     Indication: HYPERTENSION
  4. ATENOLOL [Concomitant]
  5. AMLODIPINE [Concomitant]
     Indication: HYPERTENSION
  6. CETIRIZINE [Concomitant]
     Indication: HYPERSENSITIVITY
     Dosage: OTC
  7. OMEPRAZOLE [Concomitant]
     Indication: GASTROOESOPHAGEAL REFLUX DISEASE
     Dosage: 1 EVERY 3 DAYS
  8. NASONEX [Concomitant]
     Indication: HYPERSENSITIVITY
     Dosage: 2 SPRRAYS EACH NOSTROL
  9. CALCIUM [Concomitant]
     Indication: MINERAL SUPPLEMENTATION
  10. MULTIVITAMIN [Concomitant]
     Indication: VITAMIN SUPPLEMENTATION
  11. B50 COMPLEX [Concomitant]
     Indication: VITAMIN SUPPLEMENTATION
  12. BONIVA [Concomitant]
     Indication: OSTEOPOROSIS
     Dates: start: 2012

REACTIONS (14)
  - Ventricular extrasystoles [Not Recovered/Not Resolved]
  - Palpitations [Not Recovered/Not Resolved]
  - Ear infection [Unknown]
  - Vertigo [Not Recovered/Not Resolved]
  - Influenza [Recovered/Resolved]
  - Nasopharyngitis [Recovered/Resolved]
  - Nasopharyngitis [Unknown]
  - Dyspepsia [Unknown]
  - Gastrooesophageal reflux disease [Not Recovered/Not Resolved]
  - Nasopharyngitis [Not Recovered/Not Resolved]
  - Nasal congestion [Not Recovered/Not Resolved]
  - Oropharyngeal pain [Not Recovered/Not Resolved]
  - Headache [Not Recovered/Not Resolved]
  - Hypersensitivity [Unknown]
